FAERS Safety Report 4562402-2 (Version None)
Quarter: 2005Q1

REPORT INFORMATION
  Report Type: 
  Country: None (occurrence: None)
  Receive Date: 20050127
  Receipt Date: 20040709
  Transmission Date: 20050727
  Serious: Yes (Other)
  Sender: FDA-Public Use
  Company Number: US-BRISTOL-MYERS SQUIBB COMPANY-12636569

PATIENT
  Age: 48 Year
  Sex: Female

DRUGS (3)
  1. KENALOG [Suspect]
     Indication: ARTHRALGIA
     Route: 051
  2. CIMICIFUGA [Suspect]
     Indication: HOT FLUSH
     Dosage: DURATION:  6 TO 8 MONTHS.
     Route: 048
  3. INSULIN [Concomitant]
     Indication: DIABETES MELLITUS INSULIN-DEPENDENT
     Dosage: INSULIN PUMP
     Route: 058

REACTIONS (2)
  - HYPERGLYCAEMIA [None]
  - MENSTRUATION IRREGULAR [None]
